FAERS Safety Report 5677644-2 (Version None)
Quarter: 2008Q1

REPORT INFORMATION
  Report Type: 
  Country: None (occurrence: None)
  Receive Date: 20080318
  Receipt Date: 20080310
  Transmission Date: 20080703
  Serious: Yes (Hospitalization)
  Sender: FDA-Public Use
  Company Number: THQ2008A00486

PATIENT
  Age: 65 Year
  Sex: Female

DRUGS (8)
  1. ACTOS [Suspect]
     Indication: DIABETES MELLITUS
     Dosage: 30 MG
     Route: 048
     Dates: end: 20070701
  2. NOVONORM (REPAGLINIDE) [Concomitant]
  3. METFORMIN HCL [Concomitant]
  4. SIIMVASTATIN [Concomitant]
  5. IMPUGAN (FUROSEMIDE) [Concomitant]
  6. SELOKENZOC (METOPROLOL SUCCINATE) [Concomitant]
  7. ACETYLSALICYLIC ACID SRT [Concomitant]
  8. RAMIPRIL [Concomitant]

REACTIONS (3)
  - MYOCARDIAL INFARCTION [None]
  - PULMONARY OEDEMA [None]
  - SURGERY [None]
